FAERS Safety Report 12660320 (Version 1)
Quarter: 2016Q3

REPORT INFORMATION
  Report Type: Spontaneous
  Country: US (occurrence: US)
  Receive Date: 20160817
  Receipt Date: 20160817
  Transmission Date: 20161109
  Serious: No
  Sender: FDA-Public Use
  Company Number: US-BAUSCH-BL-2015-021291

PATIENT
  Sex: Female

DRUGS (2)
  1. ZOVIRAX [Suspect]
     Active Substance: ACYCLOVIR
     Indication: GENITAL HERPES
  2. ZOVIRAX [Suspect]
     Active Substance: ACYCLOVIR
     Indication: POST HERPETIC NEURALGIA

REACTIONS (3)
  - Arthralgia [Unknown]
  - Pain [Unknown]
  - Pain in extremity [Unknown]
